FAERS Safety Report 5513623-3 (Version None)
Quarter: 2007Q4

REPORT INFORMATION
  Report Type: 
  Country: None (occurrence: None)
  Receive Date: 20071112
  Receipt Date: 20071101
  Transmission Date: 20080405
  Serious: Yes (Other)
  Sender: FDA-Public Use
  Company Number: NZ-BOEHRINGER INGELHEIM PHARMACEUTICALS, INC.-2007-BP-23599AU

PATIENT
  Sex: Female

DRUGS (3)
  1. SPIRIVA [Suspect]
     Route: 055
     Dates: start: 20071004, end: 20071010
  2. ANASTROZOLE [Concomitant]
  3. OMEPRAZOLE [Concomitant]
     Route: 048

REACTIONS (2)
  - TACHYCARDIA [None]
  - THINKING ABNORMAL [None]
